FAERS Safety Report 5567438-0 (Version None)
Quarter: 2007Q4

REPORT INFORMATION
  Report Type: 
  Country: None (occurrence: None)
  Receive Date: 20071214
  Receipt Date: 20071017
  Transmission Date: 20080405
  Serious: No
  Sender: FDA-Public Use
  Company Number: 2007S1010700

PATIENT
  Age: 82 Year
  Sex: Male

DRUGS (2)
  1. ERYTHROMYCIN [Suspect]
     Indication: DRUG USE FOR UNKNOWN INDICATION
  2. SIMVASTATIN [Suspect]

REACTIONS (6)
  - DRUG INTERACTION [None]
  - MYALGIA [None]
  - MYOPATHY [None]
  - ORTHOSTATIC HYPOTENSION [None]
  - PNEUMONIA PRIMARY ATYPICAL [None]
  - RHABDOMYOLYSIS [None]
